FAERS Safety Report 5922988-X (Version None)
Quarter: 2008Q4

REPORT INFORMATION
  Report Type: 
  Country: None (occurrence: None)
  Receive Date: 20081018
  Receipt Date: 20081006
  Transmission Date: 20090506
  Serious: Yes (Death)
  Sender: FDA-Public Use
  Company Number: IT-PFIZER INC-2008064543

PATIENT
  Sex: Female
  Weight: 64 kg

DRUGS (6)
  1. SU-011,248 [Suspect]
     Indication: BREAST CANCER
     Route: 048
     Dates: start: 20080227
  2. SU-011,248 [Suspect]
     Route: 048
     Dates: start: 20080723
  3. DOCETAXEL [Suspect]
     Indication: BREAST CANCER
     Route: 042
     Dates: start: 20080226
  4. DOCETAXEL [Suspect]
     Route: 042
     Dates: start: 20080722
  5. LOSAPREX [Concomitant]
     Indication: HYPERTENSION
     Dosage: DAILY DOSE:50MG
     Dates: start: 20020101
  6. NEULASTA [Concomitant]
     Indication: NEUTROPENIA
     Dates: start: 20080524

REACTIONS (2)
  - DEATH [None]
  - DYSPNOEA [None]
